FAERS Safety Report 18413288 (Version 3)
Quarter: 2021Q2

REPORT INFORMATION
  Report Type: Spontaneous
  Country: US (occurrence: US)
  Receive Date: 20201021
  Receipt Date: 20210513
  Transmission Date: 20210717
  Serious: Yes (Other)
  Sender: FDA-Public Use
  Company Number: US-ASTRAZENECA-2020SF34106

PATIENT
  Age: 22695 Day
  Sex: Male
  Weight: 108.9 kg

DRUGS (49)
  1. PRILOSEC [Suspect]
     Active Substance: OMEPRAZOLE MAGNESIUM
     Indication: GASTROOESOPHAGEAL REFLUX DISEASE
     Dosage: GENERIC
     Route: 065
     Dates: end: 2019
  2. RANITIDINE. [Concomitant]
     Active Substance: RANITIDINE
     Dates: start: 2018
  3. ROPINIROLE. [Concomitant]
     Active Substance: ROPINIROLE
     Dates: start: 2019
  4. TRAZODONE [Concomitant]
     Active Substance: TRAZODONE HYDROCHLORIDE
     Dates: start: 2019
  5. HEPARIN [Concomitant]
     Active Substance: HEPARIN SODIUM
     Dates: start: 2019
  6. HUMALOG [Concomitant]
     Active Substance: INSULIN LISPRO
     Dates: start: 2019
  7. VITAMIN B12 [Concomitant]
     Active Substance: CYANOCOBALAMIN
     Dates: start: 2019
  8. PRILOSEC [Suspect]
     Active Substance: OMEPRAZOLE MAGNESIUM
     Indication: GASTROOESOPHAGEAL REFLUX DISEASE
     Route: 048
     Dates: start: 1990, end: 2017
  9. PANTOPRAOZOLE [Suspect]
     Active Substance: PANTOPRAZOLE
     Indication: GASTROOESOPHAGEAL REFLUX DISEASE
     Route: 065
     Dates: start: 2000, end: 2017
  10. TYLENOL [Concomitant]
     Active Substance: ACETAMINOPHEN
     Indication: HEADACHE
  11. ISOSORBIDE. [Concomitant]
     Active Substance: ISOSORBIDE
     Dates: start: 2019
  12. CALCITROL [Concomitant]
     Dates: start: 2019
  13. BYDUREON [Concomitant]
     Active Substance: EXENATIDE
     Dates: start: 2019
  14. HYDROCODONE [Concomitant]
     Active Substance: HYDROCODONE
     Indication: PAIN
     Dates: start: 2017
  15. CARVEDILOL. [Concomitant]
     Active Substance: CARVEDILOL
     Dates: start: 2019
  16. VICTOZA [Concomitant]
     Active Substance: LIRAGLUTIDE
     Dates: start: 2019
  17. ONDANSETRON [Concomitant]
     Active Substance: ONDANSETRON
     Dates: start: 2019
  18. PREVACID [Suspect]
     Active Substance: LANSOPRAZOLE
     Indication: GASTROOESOPHAGEAL REFLUX DISEASE
     Route: 065
     Dates: start: 1995, end: 2017
  19. AMOXICILLIN. [Concomitant]
     Active Substance: AMOXICILLIN
     Indication: ANTIBIOTIC THERAPY
  20. AMLODIPINE [Concomitant]
     Active Substance: AMLODIPINE BESYLATE
     Dates: start: 2019
  21. TUMS [Concomitant]
     Active Substance: CALCIUM CARBONATE
     Dates: start: 2019
  22. NOVOLIN NOS [Concomitant]
     Active Substance: INSULIN HUMAN
     Dates: start: 2019
  23. DOXYCYCLINE. [Concomitant]
     Active Substance: DOXYCYCLINE
     Dates: start: 2019
  24. NIACIN. [Concomitant]
     Active Substance: NIACIN
     Dates: start: 2019
  25. CRESTOR [Concomitant]
     Active Substance: ROSUVASTATIN CALCIUM
     Dates: start: 2019
  26. GENTAMYCIN [Concomitant]
     Active Substance: GENTAMICIN
     Dates: start: 2019
  27. ROLAIDS [Concomitant]
     Active Substance: CALCIUM CARBONATE\MAGNESIUM HYDROXIDE
     Dates: start: 2019
  28. HYDROCODONE [Concomitant]
     Active Substance: HYDROCODONE
     Dates: start: 2019
  29. METOPROLOL. [Concomitant]
     Active Substance: METOPROLOL
     Dates: start: 2019
  30. ERYTHROMYCIN. [Concomitant]
     Active Substance: ERYTHROMYCIN
     Dates: start: 2019
  31. METOCLOPRAMIDE. [Concomitant]
     Active Substance: METOCLOPRAMIDE
     Dates: start: 2019
  32. LANTUS [Concomitant]
     Active Substance: INSULIN GLARGINE
     Dates: start: 2019
  33. FERROUS SULFATE. [Concomitant]
     Active Substance: FERROUS SULFATE
     Dates: start: 2019
  34. NEXIUM [Suspect]
     Active Substance: ESOMEPRAZOLE MAGNESIUM
     Indication: GASTROOESOPHAGEAL REFLUX DISEASE
     Route: 048
     Dates: start: 2001, end: 2017
  35. NOVOLOG [Concomitant]
     Active Substance: INSULIN ASPART
     Dates: start: 2019
  36. OXYCODONE [Concomitant]
     Active Substance: OXYCODONE
     Dates: start: 2019
  37. BENADRYL [Concomitant]
     Active Substance: DIPHENHYDRAMINE HYDROCHLORIDE
     Dates: start: 2019
  38. IMDUR [Concomitant]
     Active Substance: ISOSORBIDE MONONITRATE
     Dates: start: 2019
  39. NEXIUM [Suspect]
     Active Substance: ESOMEPRAZOLE MAGNESIUM
     Indication: GASTROOESOPHAGEAL REFLUX DISEASE
     Route: 048
     Dates: start: 200106, end: 201704
  40. LISINOPRIL. [Concomitant]
     Active Substance: LISINOPRIL
     Indication: HYPERTENSION
     Dates: start: 2012
  41. LOSARTAN. [Concomitant]
     Active Substance: LOSARTAN
     Indication: HYPERTENSION
  42. ALCAFTADINE/KETOROLAC [Concomitant]
     Dates: start: 2019
  43. PREDNISOLONE. [Concomitant]
     Active Substance: PREDNISOLONE
     Dates: start: 2019
  44. ATORVASTATIN [Concomitant]
     Active Substance: ATORVASTATIN
     Dates: start: 2019
  45. OFLOXACIN. [Concomitant]
     Active Substance: OFLOXACIN
     Dates: start: 2019
  46. SIMVASTATIN. [Concomitant]
     Active Substance: SIMVASTATIN
     Dates: start: 2019
  47. ZOSYN [Concomitant]
     Active Substance: PIPERACILLIN SODIUM\TAZOBACTAM SODIUM
     Dates: start: 2019
  48. DOCUSATE [Concomitant]
     Active Substance: DOCUSATE
     Dates: start: 2019
  49. INSULIN [Concomitant]
     Active Substance: INSULIN NOS
     Dates: start: 2019

REACTIONS (6)
  - Acute kidney injury [Unknown]
  - Hyperkalaemia [Unknown]
  - Chronic kidney disease [Not Recovered/Not Resolved]
  - Renal failure [Unknown]
  - Metabolic acidosis [Unknown]
  - End stage renal disease [Unknown]

NARRATIVE: CASE EVENT DATE: 20130211
